FAERS Safety Report 13672059 (Version 5)
Quarter: 2018Q2

REPORT INFORMATION
  Report Type: Report from Study
  Country: DE (occurrence: DE)
  Receive Date: 20170620
  Receipt Date: 20180615
  Transmission Date: 20180711
  Serious: Yes (Hospitalization, Other)
  Sender: FDA-Public Use
  Company Number: DE-BEH-2017081226

PATIENT
  Age: 75 Year
  Sex: Male
  Weight: 90 kg

DRUGS (30)
  1. PRIVIGEN [Suspect]
     Active Substance: HUMAN IMMUNOGLOBULIN G
     Dosage: UNK
     Route: 042
     Dates: start: 20170509, end: 20170509
  2. INSULIN [Concomitant]
     Active Substance: INSULIN NOS
     Route: 065
  3. METHOTREXATE (METHOTREXATE SODIUM) [Concomitant]
     Active Substance: METHOTREXATE SODIUM
     Route: 065
  4. PRIVIGEN [Suspect]
     Active Substance: HUMAN IMMUNOGLOBULIN G
     Indication: MONOCLONAL GAMMOPATHY
     Dosage: 20 G; INFUSION RATE: 1,25 TO 9 ML/MIN; CONCENTRATION OF SOLUTION: 10%
     Route: 042
     Dates: start: 20170313, end: 20170313
  5. PRIVIGEN [Suspect]
     Active Substance: HUMAN IMMUNOGLOBULIN G
     Dosage: UNK
     Route: 042
     Dates: start: 20161220, end: 20161220
  6. PRIVIGEN [Suspect]
     Active Substance: HUMAN IMMUNOGLOBULIN G
     Dosage: UNK
     Route: 042
     Dates: start: 20170117, end: 20170117
  7. PRIVIGEN [Suspect]
     Active Substance: HUMAN IMMUNOGLOBULIN G
     Dosage: 30 G, TOT
     Route: 042
     Dates: start: 20170509, end: 20170509
  8. SYMBICORT [Concomitant]
     Active Substance: BUDESONIDE\FORMOTEROL FUMARATE DIHYDRATE
     Route: 065
  9. ACC                                /00082801/ [Concomitant]
     Active Substance: ACETYLCYSTEINE
     Route: 065
  10. PRIVIGEN [Suspect]
     Active Substance: HUMAN IMMUNOGLOBULIN G
     Dosage: UNK
     Route: 042
     Dates: start: 20170214, end: 20170214
  11. PRIVIGEN [Suspect]
     Active Substance: HUMAN IMMUNOGLOBULIN G
     Dosage: UNK
     Route: 042
     Dates: start: 20170214, end: 20170214
  12. PRIVIGEN [Suspect]
     Active Substance: HUMAN IMMUNOGLOBULIN G
     Dosage: UNK
     Route: 042
     Dates: start: 20170606, end: 20170606
  13. FOLIC ACID. [Concomitant]
     Active Substance: FOLIC ACID
     Route: 065
  14. ATACAND [Concomitant]
     Active Substance: CANDESARTAN CILEXETIL
     Route: 065
  15. PRIVIGEN [Suspect]
     Active Substance: HUMAN IMMUNOGLOBULIN G
     Dosage: UNK
     Route: 042
     Dates: start: 20170509, end: 20170509
  16. RAMIPRIL. [Concomitant]
     Active Substance: RAMIPRIL
     Route: 065
  17. NOVALGIN                           /00169801/ [Concomitant]
     Active Substance: ACETAMINOPHEN\CAFFEINE\PROPYPHENAZONE
     Route: 065
  18. PRIVIGEN [Suspect]
     Active Substance: HUMAN IMMUNOGLOBULIN G
     Dosage: 10 G; INFUSION RATE: 1,25 TO 9 ML/MIN; CONCENTRATION OF SOLUTION: 10%
     Route: 042
     Dates: start: 20170313, end: 20170313
  19. PRIVIGEN [Suspect]
     Active Substance: HUMAN IMMUNOGLOBULIN G
     Dosage: 30 G, TOT
     Route: 042
     Dates: start: 20170606, end: 20170606
  20. AMLODIPIN                          /00972401/ [Concomitant]
     Active Substance: AMLODIPINE BESYLATE
     Route: 065
  21. VITAMIN D3 [Concomitant]
     Active Substance: CHOLECALCIFEROL
     Route: 065
  22. PRIVIGEN [Suspect]
     Active Substance: HUMAN IMMUNOGLOBULIN G
     Dosage: 30 G, TOT
     Route: 042
     Dates: start: 20161220, end: 20161220
  23. PRIVIGEN [Suspect]
     Active Substance: HUMAN IMMUNOGLOBULIN G
     Dosage: UNK
     Route: 042
     Dates: start: 20161220, end: 20161220
  24. PRIVIGEN [Suspect]
     Active Substance: HUMAN IMMUNOGLOBULIN G
     Dosage: 30 G, TOT
     Route: 042
     Dates: start: 20170117, end: 20170117
  25. PRIVIGEN [Suspect]
     Active Substance: HUMAN IMMUNOGLOBULIN G
     Dosage: UNK
     Route: 042
     Dates: start: 20170117, end: 20170117
  26. PRIVIGEN [Suspect]
     Active Substance: HUMAN IMMUNOGLOBULIN G
     Dosage: UNK
     Route: 042
     Dates: start: 20170606, end: 20170606
  27. PRIVIGEN [Suspect]
     Active Substance: HUMAN IMMUNOGLOBULIN G
     Dosage: 30 G, TOT
     Route: 042
     Dates: start: 20170214, end: 20170214
  28. METFORMIN [Concomitant]
     Active Substance: METFORMIN HYDROCHLORIDE
     Route: 065
  29. TESTOGEL [Concomitant]
     Active Substance: TESTOSTERONE
     Route: 065
  30. PANTOZOL [Concomitant]
     Active Substance: PANTOPRAZOLE SODIUM
     Route: 065

REACTIONS (14)
  - Bronchitis bacterial [Recovered/Resolved]
  - Pneumothorax [Recovered/Resolved]
  - Escherichia infection [Recovered/Resolved]
  - Wheezing [Recovered/Resolved]
  - Serratia infection [Recovered/Resolved]
  - Dyspnoea [Recovered/Resolved]
  - Productive cough [Recovered/Resolved]
  - General physical health deterioration [Recovered/Resolved]
  - Infective exacerbation of chronic obstructive airways disease [Recovered/Resolved]
  - Bronchitis chronic [Recovered/Resolved]
  - Pyrexia [Recovered/Resolved]
  - Oral candidiasis [Unknown]
  - Pathogen resistance [Recovered/Resolved]
  - Increased bronchial secretion [Recovered/Resolved]

NARRATIVE: CASE EVENT DATE: 20170410
